FAERS Safety Report 21519357 (Version 1)
Quarter: 2022Q4

REPORT INFORMATION
  Report Type: Other
  Country: US (occurrence: US)
  Receive Date: 20221028
  Receipt Date: 20221028
  Transmission Date: 20230112
  Serious: Yes (Death)
  Sender: FDA-Public Use
  Company Number: US-ROCHE-3207641

PATIENT
  Age: 67 Year
  Sex: Female

DRUGS (7)
  1. TECENTRIQ [Suspect]
     Active Substance: ATEZOLIZUMAB
     Indication: Lung neoplasm malignant
     Route: 042
  2. TECENTRIQ [Suspect]
     Active Substance: ATEZOLIZUMAB
     Indication: Metastases to bone
  3. EMEND [Concomitant]
     Active Substance: APREPITANT
  4. ALOXI [Concomitant]
     Active Substance: PALONOSETRON HYDROCHLORIDE
  5. CARBOPLATIN [Concomitant]
     Active Substance: CARBOPLATIN
  6. ETOPOSIDE [Concomitant]
     Active Substance: ETOPOSIDE
  7. ZIEXTENZO [Concomitant]
     Active Substance: PEGFILGRASTIM-BMEZ

REACTIONS (1)
  - Death [Fatal]

NARRATIVE: CASE EVENT DATE: 20221011
